FAERS Safety Report 9027059 (Version 2)
Quarter: 2013Q1

REPORT INFORMATION
  Report Type: Spontaneous
  Country: US (occurrence: US)
  Receive Date: 20130123
  Receipt Date: 20130221
  Transmission Date: 20140127
  Serious: No
  Sender: FDA-Public Use
  Company Number: US-TEVA-380924USA

PATIENT
  Sex: Female

DRUGS (3)
  1. PROAIR HFA [Suspect]
     Indication: ASTHMA
  2. QVAR [Suspect]
     Indication: ASTHMA
  3. PROVENTIL [Concomitant]
     Indication: ASTHMA

REACTIONS (1)
  - Laryngitis [Recovered/Resolved]
